FAERS Safety Report 5103473-4 (Version None)
Quarter: 2006Q3

REPORT INFORMATION
  Report Type: 
  Country: None (occurrence: None)
  Receive Date: 20060913
  Receipt Date: 20060905
  Transmission Date: 20061208
  Serious: Yes (Death, Hospitalization)
  Sender: FDA-Public Use
  Company Number: US-JNJFOC-20060902128

PATIENT
  Age: 80 Year
  Sex: Male

DRUGS (6)
  1. ACETAMINOPHEN [Suspect]
     Route: 048
  2. ACETAMINOPHEN [Suspect]
     Indication: SUICIDE ATTEMPT
     Route: 048
  3. FLUOXETINE [Suspect]
     Indication: SUICIDE ATTEMPT
     Route: 048
  4. ASPIRIN [Concomitant]
  5. VENLAFAXIN [Concomitant]
  6. ACETONE [Concomitant]

REACTIONS (5)
  - COMPLETED SUICIDE [None]
  - HEPATIC FAILURE [None]
  - HYPOXIC ENCEPHALOPATHY [None]
  - MULTIPLE DRUG OVERDOSE INTENTIONAL [None]
  - RESPIRATORY DISTRESS [None]
